FAERS Safety Report 6431405-5 (Version None)
Quarter: 2009Q4

REPORT INFORMATION
  Report Type: 
  Country: None (occurrence: None)
  Receive Date: 20091106
  Receipt Date: 20091030
  Transmission Date: 20100525
  Serious: Yes (Hospitalization)
  Sender: FDA-Public Use
  Company Number: PHHO2009IT13474

PATIENT
  Sex: Male

DRUGS (2)
  1. RAD 666 RAD+TAB [Suspect]
     Indication: LIVER TRANSPLANT
     Dosage: UNK
     Route: 048
     Dates: start: 20090408, end: 20090820
  2. TACROLIMUS COMP-TAC+ [Suspect]
     Indication: LIVER TRANSPLANT
     Dosage: UNK
     Route: 048

REACTIONS (1)
  - HEPATITIS [None]
